FAERS Safety Report 19780543 (Version 1)
Quarter: 2021Q3

REPORT INFORMATION
  Report Type: Spontaneous
  Country: CZ (occurrence: CZ)
  Receive Date: 20210902
  Receipt Date: 20210902
  Transmission Date: 20211014
  Serious: Yes (Other)
  Sender: FDA-Public Use
  Company Number: CZ-MYLANLABS-2020M1072663

PATIENT
  Age: 12 Year
  Sex: Male

DRUGS (3)
  1. ATOMOXETIN MYLAN 40 MG [Suspect]
     Active Substance: ATOMOXETINE HYDROCHLORIDE
     Dosage: 40 MILLIGRAM, QD
     Route: 048
     Dates: start: 20200727
  2. ATOMOXETIN MYLAN 40 MG [Suspect]
     Active Substance: ATOMOXETINE HYDROCHLORIDE
     Dosage: UNK
     Route: 048
     Dates: start: 2016, end: 202003
  3. ATOMOXETIN MYLAN 40 MG [Suspect]
     Active Substance: ATOMOXETINE HYDROCHLORIDE
     Indication: ATTENTION DEFICIT HYPERACTIVITY DISORDER
     Dosage: UNK
     Route: 048
     Dates: start: 202005

REACTIONS (23)
  - Nausea [Unknown]
  - Paraesthesia [Unknown]
  - Asthenia [Unknown]
  - Personality disorder [Unknown]
  - Depression [Unknown]
  - Anxiety [Unknown]
  - Dizziness [Unknown]
  - Hallucination [Unknown]
  - Pruritus [Unknown]
  - Disturbance in attention [Unknown]
  - Tremor [Unknown]
  - Middle insomnia [Unknown]
  - Decreased appetite [Unknown]
  - Memory impairment [Unknown]
  - Constipation [Unknown]
  - Nervousness [Unknown]
  - Hyperhidrosis [Unknown]
  - Weight decreased [Unknown]
  - Fatigue [Unknown]
  - Lethargy [Unknown]
  - Dysuria [Unknown]
  - Taciturnity [Unknown]
  - Depressed mood [Unknown]
